FAERS Safety Report 8941514 (Version 1)
Quarter: 2012Q4

REPORT INFORMATION
  Report Type: 
  Country: US (occurrence: US)
  Receive Date: 20121203
  Receipt Date: 20121203
  Transmission Date: 20130627
  Serious: Yes (Other)
  Sender: FDA-Public Use
  Company Number: US-WATSON-2012-20354

PATIENT
  Age: 70 None
  Sex: Female
  Weight: 58 kg

DRUGS (2)
  1. PROPAFENONE [Suspect]
     Indication: ATRIAL FIBRILLATION
     Dosage: 150 mg, tid
     Route: 048
     Dates: start: 20111101
  2. PROPAFENONE [Suspect]
     Indication: ATRIAL FIBRILLATION
     Dosage: 225 mg, tid
     Route: 048
     Dates: start: 2007, end: 20111031

REACTIONS (11)
  - Loss of consciousness [Recovered/Resolved]
  - Fall [Recovered/Resolved]
  - Laceration [Recovered/Resolved]
  - Jaw fracture [Recovered/Resolved]
  - Oedema peripheral [Not Recovered/Not Resolved]
  - Joint swelling [Not Recovered/Not Resolved]
  - Arthralgia [Not Recovered/Not Resolved]
  - Pain in extremity [Not Recovered/Not Resolved]
  - Erythema [Not Recovered/Not Resolved]
  - Constipation [Not Recovered/Not Resolved]
  - Rash [Recovered/Resolved]
